FAERS Safety Report 4978960-X (Version None)
Quarter: 2006Q2

REPORT INFORMATION
  Report Type: 
  Country: None (occurrence: None)
  Receive Date: 20060419
  Receipt Date: 20060419
  Transmission Date: 20061013
  Serious: Yes (Hospitalization)
  Sender: FDA-Public Use
  Company Number: None

PATIENT
  Age: 70 Year
  Sex: Male
  Weight: 80.9 kg

DRUGS (7)
  1. TAXOTERE [Suspect]
     Indication: LARYNGEAL CANCER
     Dosage: 30 MG/M2,  IV
     Route: 042
     Dates: start: 20060410
  2. LONAFARNIB (SCH 66336) [Suspect]
     Indication: NEOPLASM MALIGNANT
     Dosage: 100MG BID, PO
     Route: 048
     Dates: start: 20060407, end: 20060415
  3. SIMVASTATIN [Concomitant]
  4. ATENOLOL [Concomitant]
  5. SYNTHROID [Concomitant]
  6. MS CONTIN [Concomitant]
  7. PERCOCET [Concomitant]

REACTIONS (4)
  - ORAL INTAKE REDUCED [None]
  - POST PROCEDURAL COMPLICATION [None]
  - PROCEDURAL SITE REACTION [None]
  - WOUND DRAINAGE [None]
